FAERS Safety Report 7413674-8 (Version None)
Quarter: 2011Q2

REPORT INFORMATION
  Report Type: 
  Country: None (occurrence: None)
  Receive Date: 20110413
  Receipt Date: 20110321
  Transmission Date: 20111010
  Serious: Yes (Disabling, Other)
  Sender: FDA-Public Use
  Company Number: US-BAYER-2010-000747

PATIENT
  Sex: Female
  Weight: 104 kg

DRUGS (2)
  1. YASMIN [Suspect]
     Indication: ORAL CONTRACEPTION
     Dosage: UNK
     Route: 048
     Dates: start: 19970101, end: 20090101
  2. YAZ [Suspect]
     Indication: PRODUCT USED FOR UNKNOWN INDICATION
     Dosage: UNK
     Dates: start: 19970101, end: 20090101

REACTIONS (7)
  - DEPRESSION [None]
  - THROMBOSIS [None]
  - HEADACHE [None]
  - ECTOPIC PREGNANCY [None]
  - DEEP VEIN THROMBOSIS [None]
  - ABORTION SPONTANEOUS [None]
  - LEARNING DISABILITY [None]
